FAERS Safety Report 9058373 (Version 4)
Quarter: 2013Q3

REPORT INFORMATION
  Report Type: Report from Study
  Country: CA (occurrence: CA)
  Receive Date: 20130211
  Receipt Date: 20130710
  Transmission Date: 20140515
  Serious: Yes (Hospitalization, Other)
  Sender: FDA-Public Use
  Company Number: CA-JNJFOC-20130117345

PATIENT
  Age: 52 Year
  Sex: Male
  Weight: 92.7 kg

DRUGS (13)
  1. REMICADE [Suspect]
     Indication: PSORIATIC ARTHROPATHY
     Route: 042
     Dates: start: 20120613
  2. REMICADE [Suspect]
     Indication: CROHN^S DISEASE
     Route: 042
     Dates: start: 20120613
  3. AVODART [Concomitant]
     Route: 065
  4. TRAMADOL [Concomitant]
     Route: 065
  5. ALFUZOSIN [Concomitant]
     Route: 065
  6. ATORVASTATIN [Concomitant]
     Route: 065
  7. AMLODIPINE [Concomitant]
     Route: 065
  8. MAVIK [Concomitant]
     Route: 065
  9. NEXIUM [Concomitant]
     Route: 065
  10. ASPIRIN [Concomitant]
     Dosage: LOW DOSE
     Route: 065
  11. COVERSYL [Concomitant]
     Route: 065
  12. CHAMPIX [Concomitant]
     Route: 065
  13. TRIDURAL [Concomitant]
     Route: 065

REACTIONS (4)
  - Bone lesion [Unknown]
  - Neoplasm [Unknown]
  - Infection [Recovering/Resolving]
  - Epistaxis [Recovering/Resolving]
